FAERS Safety Report 4320301-5 (Version None)
Quarter: 2004Q1

REPORT INFORMATION
  Report Type: 
  Country: None (occurrence: None)
  Receive Date: 20040317
  Receipt Date: 20040304
  Transmission Date: 20041129
  Serious: Yes (Life-Threatening)
  Sender: FDA-Public Use
  Company Number: 2004015549

PATIENT
  Age: 46 Year
  Sex: Female

DRUGS (3)
  1. ZOLOFT [Suspect]
     Indication: ANXIETY
     Dosage: 150 MG (DAILY), ORAL
     Route: 048
     Dates: start: 20010301, end: 20040304
  2. ZOLOFT [Suspect]
     Indication: DEPRESSION
     Dosage: 150 MG (DAILY), ORAL
     Route: 048
     Dates: start: 20010301, end: 20040304
  3. ALL OTHER THERAPEUTIC PRODUCTS [Concomitant]

REACTIONS (4)
  - AGITATION [None]
  - ASTHMA [None]
  - DIARRHOEA [None]
  - NEUROPATHY [None]
